FAERS Safety Report 15832236 (Version 1)
Quarter: 2019Q1

REPORT INFORMATION
  Report Type: Spontaneous
  Country: JP (occurrence: JP)
  Receive Date: 20190116
  Receipt Date: 20190116
  Transmission Date: 20190417
  Serious: Yes (Death)
  Sender: FDA-Public Use
  Company Number: JP-ROCHE-2246740

PATIENT
  Age: 6 Decade
  Sex: Female

DRUGS (2)
  1. HERCEPTIN [Suspect]
     Active Substance: TRASTUZUMAB
     Dosage: 300-150MG (ONCE DASAGE)??ON 15/JUL/2008, SHE RECEIVED MOS RECENT DOSE OF TRASTUZUMAB.
     Route: 041
     Dates: start: 20080512
  2. HERCEPTIN [Suspect]
     Active Substance: TRASTUZUMAB
     Indication: BREAST CANCER
     Dosage: 300-150MG (ONCE DASAGE)
     Route: 041
     Dates: start: 20070524, end: 20070607

REACTIONS (1)
  - Right ventricular failure [Fatal]

NARRATIVE: CASE EVENT DATE: 20080723
